FAERS Safety Report 17585700 (Version 1)
Quarter: 2020Q1

REPORT INFORMATION
  Report Type: Report from Study
  Country: US (occurrence: US)
  Receive Date: 20200326
  Receipt Date: 20200326
  Transmission Date: 20200409
  Serious: Yes (Other)
  Sender: FDA-Public Use
  Company Number: US-PFIZER INC-2019457452

PATIENT
  Age: 59 Year
  Sex: Female

DRUGS (4)
  1. IBRANCE [Suspect]
     Active Substance: PALBOCICLIB
     Indication: BREAST CANCER FEMALE
     Dosage: 100 MG, CYCLIC (DAILY FOR 21 DAYS ON AND 7 DAYS OFF IN CONJUNCTION WITH FEMARA))
     Route: 048
     Dates: start: 20190930
  2. IBRANCE [Suspect]
     Active Substance: PALBOCICLIB
     Dosage: 100 MG, CYCLIC (DAILY FOR 21 DAYS ON, 7 DAYS OFF)
     Route: 048
     Dates: start: 20200114
  3. IBRANCE [Suspect]
     Active Substance: PALBOCICLIB
     Dosage: 100 MG, CYCLIC (DAILY FOR 21 DAYS ON AND 7 DAYS OFF)
     Route: 048
     Dates: end: 202002
  4. FEMARA [Concomitant]
     Active Substance: LETROZOLE
     Dosage: UNK UNK, DAILY
     Route: 048

REACTIONS (10)
  - Blood calcium decreased [Unknown]
  - Bronchitis [Recovered/Resolved]
  - Leukopenia [Unknown]
  - Bone marrow failure [Unknown]
  - Tooth infection [Unknown]
  - Insomnia [Unknown]
  - Pain [Recovered/Resolved]
  - Toothache [Unknown]
  - Fatigue [Recovered/Resolved]
  - Nasal inflammation [Unknown]

NARRATIVE: CASE EVENT DATE: 2019
